FAERS Safety Report 20355757 (Version 1)
Quarter: 2022Q1

REPORT INFORMATION
  Report Type: Spontaneous
  Country: CA (occurrence: CA)
  Receive Date: 20220120
  Receipt Date: 20220120
  Transmission Date: 20220423
  Serious: Yes (Life-Threatening, Hospitalization, Other)
  Sender: FDA-Public Use
  Company Number: CA-BRISTOL-MYERS SQUIBB COMPANY-BMS-2022-008092

PATIENT
  Age: 78 Year
  Sex: Male
  Weight: 56 kg

DRUGS (1)
  1. ELIQUIS [Suspect]
     Active Substance: APIXABAN
     Indication: Cerebrovascular accident prophylaxis
     Dosage: 5 MILLIGRAM, BID
     Route: 048

REACTIONS (4)
  - Adverse event [Unknown]
  - Hospitalisation [Unknown]
  - Gastritis haemorrhagic [Recovered/Resolved]
  - Anaemia [Recovered/Resolved]
